FAERS Safety Report 8537550-2 (Version None)
Quarter: 2012Q3

REPORT INFORMATION
  Report Type: 
  Country: None (occurrence: None)
  Receive Date: 20120725
  Receipt Date: 20120719
  Transmission Date: 20120928
  Serious: Yes (Hospitalization)
  Sender: FDA-Public Use
  Company Number: CA-TEVA-350073USA

PATIENT
  Sex: Male
  Weight: 66 kg

DRUGS (8)
  1. CENTRUM [Concomitant]
     Indication: PROPHYLAXIS
     Dosage: 1 DOSAGE FORMS;
     Route: 048
     Dates: start: 20080820
  2. PROCHLORPERAZINE [Concomitant]
     Indication: PROPHYLAXIS OF NAUSEA AND VOMITING
     Route: 048
     Dates: start: 20120523
  3. VITAMIN B-12 [Concomitant]
     Indication: PROPHYLAXIS
     Dosage: 33.3333 MICROGRAM;
     Route: 030
     Dates: start: 20090507
  4. TREANDA [Suspect]
     Route: 042
     Dates: start: 20120523
  5. SYMBICORT [Concomitant]
     Indication: PULMONARY OEDEMA
     Dosage: 500 MICROGRAM; 1-2
     Route: 055
     Dates: start: 20081128
  6. TERAZOSIN HYDROCHLORIDE [Concomitant]
     Indication: PROSTATIC DISORDER
     Dosage: 1 MILLIGRAM;
     Route: 048
  7. CITALOPRAM HYDROBROMIDE [Concomitant]
     Indication: ANTIDEPRESSANT THERAPY
     Dosage: 20 MILLIGRAM;
     Dates: start: 20081017
  8. WARFARIN SODIUM [Concomitant]
     Indication: ATRIAL FIBRILLATION
     Dosage: 3 MILLIGRAM;
     Route: 048
     Dates: start: 20080820, end: 20120710

REACTIONS (1)
  - SYNCOPE [None]
